FAERS Safety Report 6467862-8 (Version None)
Quarter: 2009Q4

REPORT INFORMATION
  Report Type: 
  Country: None (occurrence: None)
  Receive Date: 20091202
  Receipt Date: 20091125
  Transmission Date: 20100525
  Serious: Yes (Other)
  Sender: FDA-Public Use
  Company Number: US-AMGEN-QUU347581

PATIENT
  Sex: Female
  Weight: 56 kg

DRUGS (4)
  1. ENBREL [Suspect]
     Indication: RHEUMATOID ARTHRITIS
     Route: 058
     Dates: start: 20071008, end: 20080721
  2. METHOTREXATE [Concomitant]
     Dates: start: 20060901, end: 20090101
  3. PIROXICAM [Concomitant]
     Dates: start: 20040801, end: 20071201
  4. HUMIRA [Concomitant]
     Dates: start: 20080701, end: 20081001

REACTIONS (1)
  - WEGENER'S GRANULOMATOSIS [None]
